FAERS Safety Report 19194678 (Version 1)
Quarter: 2021Q2

REPORT INFORMATION
  Report Type: Report from Study
  Country: US (occurrence: US)
  Receive Date: 20210429
  Receipt Date: 20210429
  Transmission Date: 20210717
  Serious: Yes (Hospitalization, Other)
  Sender: FDA-Public Use
  Company Number: US-GILEAD-2021-0526396

PATIENT
  Sex: Male

DRUGS (13)
  1. XOLAIR [Concomitant]
     Active Substance: OMALIZUMAB
  2. SYMBICORT [Concomitant]
     Active Substance: BUDESONIDE\FORMOTEROL FUMARATE DIHYDRATE
  3. ZYRTEC [Concomitant]
     Active Substance: CETIRIZINE HYDROCHLORIDE
  4. ADVIL [Concomitant]
     Active Substance: IBUPROFEN
  5. PROBIOTIC [Concomitant]
     Active Substance: PROBIOTICS NOS
  6. CALCIUM + D3 [CALCIUM;COLECALCIFEROL] [Concomitant]
     Active Substance: CALCIUM\CHOLECALCIFEROL
  7. AZTREONAM LYSINE [Suspect]
     Active Substance: AZTREONAM LYSINE
     Indication: CYSTIC FIBROSIS
     Dosage: 75 MG, TID, NO OFF TIME
     Route: 055
  8. VALIUM [Concomitant]
     Active Substance: DIAZEPAM
  9. PROAIR HFA [Concomitant]
     Active Substance: ALBUTEROL SULFATE
  10. ALBUTEROL SULFATE. [Concomitant]
     Active Substance: ALBUTEROL SULFATE
  11. DILANTIN [Concomitant]
     Active Substance: PHENYTOIN
  12. GABAPENTIN. [Concomitant]
     Active Substance: GABAPENTIN
  13. FLOMAX [Concomitant]
     Active Substance: TAMSULOSIN HYDROCHLORIDE

REACTIONS (2)
  - Pneumonia [Unknown]
  - Off label use [Unknown]
